FAERS Safety Report 4690968-0 (Version None)
Quarter: 2005Q2

REPORT INFORMATION
  Report Type: 
  Country: None (occurrence: None)
  Receive Date: 20050610
  Receipt Date: 20050607
  Transmission Date: 20051028
  Serious: Yes (Hospitalization)
  Sender: FDA-Public Use
  Company Number: 22754

PATIENT
  Age: 58 Year
  Sex: Male
  Weight: 95.2554 kg

DRUGS (4)
  1. NIASPAN [Suspect]
     Indication: BLOOD CHOLESTEROL INCREASED
     Dosage: 750 MG QHS PO
     Route: 048
     Dates: start: 20040101, end: 20050526
  2. NIASPAN [Suspect]
     Indication: BLOOD TRIGLYCERIDES INCREASED
     Dosage: 750 MG QHS PO
     Route: 048
     Dates: start: 20040101, end: 20050526
  3. CRESTOR [Suspect]
     Indication: BLOOD CHOLESTEROL INCREASED
     Dosage: 20 MG QHS PO
     Route: 048
     Dates: start: 20050101, end: 20050526
  4. ECOTRIN [Concomitant]

REACTIONS (5)
  - ABASIA [None]
  - CONDITION AGGRAVATED [None]
  - DRUG INTERACTION [None]
  - GOUT [None]
  - MUSCLE HAEMORRHAGE [None]
